FAERS Safety Report 23024693 (Version 1)
Quarter: 2023Q4

REPORT INFORMATION
  Report Type: Report from Study
  Country: BR (occurrence: BR)
  Receive Date: 20231004
  Receipt Date: 20231004
  Transmission Date: 20240110
  Serious: Yes (Other)
  Sender: FDA-Public Use
  Company Number: BR-TAKEDA-BR202027375

PATIENT
  Age: 22 Year
  Sex: Male
  Weight: 75 kg

DRUGS (2)
  1. IDURSULFASE [Suspect]
     Active Substance: IDURSULFASE
     Indication: Mucopolysaccharidosis II
     Dosage: UNK
     Route: 042
  2. IDURSULFASE [Suspect]
     Active Substance: IDURSULFASE
     Dosage: 7 DOSAGE FORM, 1/WEEK
     Route: 065

REACTIONS (14)
  - Obstructive airways disorder [Unknown]
  - Mitral valve incompetence [Unknown]
  - Myxomatous mitral valve degeneration [Unknown]
  - Weight increased [Unknown]
  - Patient uncooperative [Unknown]
  - Product availability issue [Unknown]
  - Gait disturbance [Unknown]
  - Stenosis [Unknown]
  - Mitral valve prolapse [Unknown]
  - Left ventricular hypertrophy [Unknown]
  - Hepatomegaly [Unknown]
  - Visual impairment [Unknown]
  - Incorrect dose administered [Unknown]
  - Inappropriate schedule of product administration [Unknown]

NARRATIVE: CASE EVENT DATE: 20211230
